FAERS Safety Report 24171116 (Version 3)
Quarter: 2025Q2

REPORT INFORMATION
  Report Type: Spontaneous
  Country: US (occurrence: US)
  Receive Date: 20240805
  Receipt Date: 20250416
  Transmission Date: 20250716
  Serious: No
  Sender: SANOFI AVENTIS
  Company Number: US-SANOFI-02161785

PATIENT
  Age: 75 Year
  Sex: Female

DRUGS (1)
  1. DUPIXENT [Suspect]
     Active Substance: DUPILUMAB
     Indication: Asthma
     Dosage: 300 MG, QOW
     Route: 058

REACTIONS (9)
  - Abdominal distension [Unknown]
  - Diarrhoea [Unknown]
  - Nausea [Recovered/Resolved]
  - Loss of personal independence in daily activities [Unknown]
  - Dyspnoea [Unknown]
  - Dizziness [Recovered/Resolved]
  - Oral herpes [Unknown]
  - Dry eye [Unknown]
  - Arthralgia [Unknown]
